FAERS Safety Report 5781256-X (Version None)
Quarter: 2008Q2

REPORT INFORMATION
  Report Type: 
  Country: None (occurrence: None)
  Receive Date: 20080618
  Receipt Date: 20080610
  Transmission Date: 20081010
  Serious: Yes (Hospitalization)
  Sender: FDA-Public Use
  Company Number: 163-21880-08060632

PATIENT
  Age: 54 Year
  Sex: Male

DRUGS (1)
  1. REVLIMID [Suspect]
     Indication: LYMPHOMA
     Dosage: 25 MG, DAYS1 - 21 D, ORAL
     Route: 048
     Dates: start: 20080522, end: 20080527

REACTIONS (3)
  - ABDOMINAL DISCOMFORT [None]
  - MUSCLE SPASMS [None]
  - TUMOUR LYSIS SYNDROME [None]
